FAERS Safety Report 8419034-5 (Version None)
Quarter: 2012Q2

REPORT INFORMATION
  Report Type: 
  Country: None (occurrence: None)
  Receive Date: 20120607
  Receipt Date: 20120604
  Transmission Date: 20120825
  Serious: Yes (Other)
  Sender: FDA-Public Use
  Company Number: PHHY2012CN048303

PATIENT
  Age: 80 Year
  Sex: Female

DRUGS (1)
  1. MIACALCIN [Suspect]
     Dosage: 1 DF, (1 PUFF)
     Route: 045

REACTIONS (3)
  - HYPERHIDROSIS [None]
  - ELECTROCARDIOGRAM ABNORMAL [None]
  - SHOCK [None]
